FAERS Safety Report 15542749 (Version 2)
Quarter: 2018Q4

REPORT INFORMATION
  Report Type: Spontaneous
  Country: US (occurrence: US)
  Receive Date: 20181023
  Receipt Date: 20181221
  Transmission Date: 20190205
  Serious: Yes (Hospitalization)
  Sender: FDA-Public Use
  Company Number: US-ASTRAZENECA-2018SF36352

PATIENT
  Age: 66 Year
  Sex: Male

DRUGS (4)
  1. SYMBICORT [Suspect]
     Active Substance: BUDESONIDE\FORMOTEROL FUMARATE DIHYDRATE
     Indication: CHRONIC OBSTRUCTIVE PULMONARY DISEASE
     Dosage: 160/4.5 MCG , 2 PUFFS AT 9 IN THE MORNING AND 2 PUFFS AT 9 AT NIGHT
     Route: 055
  2. SYMBICORT [Suspect]
     Active Substance: BUDESONIDE\FORMOTEROL FUMARATE DIHYDRATE
     Indication: EMPHYSEMA
     Dosage: 160/4.5 MCG , 2 PUFFS AT 9 IN THE MORNING AND 2 PUFFS AT 9 AT NIGHT
     Route: 055
  3. ALBUTEROL AND IPATROPIUM BROMIDE NEBULIZER [Concomitant]
     Dosage: FOUR TIMES A DAY
     Route: 055
  4. ALBUTEROL INHALER [Concomitant]
     Active Substance: ALBUTEROL
     Indication: SUPPLEMENTATION THERAPY
     Route: 055

REACTIONS (6)
  - Device malfunction [Unknown]
  - Lung infection [Recovered/Resolved]
  - Hepatic infection [Recovered/Resolved]
  - Circumstance or information capable of leading to medication error [Unknown]
  - Tooth infection [Recovered/Resolved]
  - Dyspnoea [Not Recovered/Not Resolved]

NARRATIVE: CASE EVENT DATE: 2017
